FAERS Safety Report 8450069-2 (Version None)
Quarter: 2012Q2

REPORT INFORMATION
  Report Type: 
  Country: None (occurrence: None)
  Receive Date: 20120614
  Receipt Date: 20120614
  Transmission Date: 20120825
  Serious: Yes (Other)
  Sender: FDA-Public Use
  Company Number: None

PATIENT
  Sex: Male
  Weight: 120.6568 kg

DRUGS (1)
  1. QUETIAPINE [Suspect]
     Indication: MOOD ALTERED
     Dosage: 200 MG ONE TAB AT BEDTIME PO
     Route: 048
     Dates: start: 20120508, end: 20120525

REACTIONS (3)
  - PANIC ATTACK [None]
  - PRODUCT SUBSTITUTION ISSUE [None]
  - TREMOR [None]
